FAERS Safety Report 8978465 (Version 1)
Quarter: 2012Q4

REPORT INFORMATION
  Report Type: 
  Country: FR (occurrence: FR)
  Receive Date: 20121221
  Receipt Date: 20121221
  Transmission Date: 20130627
  Serious: No
  Sender: FDA-Public Use
  Company Number: FR-JNJFOC-20121205365

PATIENT
  Age: 80 Year
  Sex: Male

DRUGS (3)
  1. DUROGESIC [Suspect]
     Indication: PLEURITIC PAIN
     Route: 062
     Dates: start: 201212
  2. DUROGESIC [Suspect]
     Indication: PLEURITIC PAIN
     Dosage: for the first patch
     Route: 062
     Dates: start: 201212, end: 201212
  3. UNKNOWN MEDICATION [Concomitant]
     Route: 065

REACTIONS (3)
  - Inappropriate schedule of drug administration [Unknown]
  - Off label use [Unknown]
  - Somnolence [Not Recovered/Not Resolved]
